FAERS Safety Report 19765253 (Version 1)
Quarter: 2021Q3

REPORT INFORMATION
  Report Type: Report from Study
  Country: US (occurrence: US)
  Receive Date: 20210831
  Receipt Date: 20210831
  Transmission Date: 20211014
  Serious: Yes (Other)
  Sender: FDA-Public Use
  Company Number: US-BRISTOL-MYERS SQUIBB COMPANY-BMS-2021-084217

PATIENT
  Age: 68 Year
  Sex: Female
  Weight: 65.76 kg

DRUGS (6)
  1. STEROIDS [Concomitant]
     Active Substance: UNSPECIFIED INGREDIENT
     Indication: PRODUCT USED FOR UNKNOWN INDICATION
     Dosage: 40MG DOSE A DAY FOR 2 TO 3 MONTHS
     Route: 065
  2. METHOTREXATE. [Concomitant]
     Active Substance: METHOTREXATE
     Indication: PRODUCT USED FOR UNKNOWN INDICATION
     Route: 065
  3. ABATACEPT [Suspect]
     Active Substance: ABATACEPT
     Indication: RHEUMATOID ARTHRITIS
     Dosage: 750 MILLIGRAM, Q4WK
     Route: 042
  4. ABATACEPT [Suspect]
     Active Substance: ABATACEPT
     Indication: SJOGREN^S SYNDROME
  5. STEROIDS [Concomitant]
     Active Substance: UNSPECIFIED INGREDIENT
     Dosage: 10 MILLIGRAM
     Route: 065
  6. ABATACEPT [Suspect]
     Active Substance: ABATACEPT
     Indication: SYSTEMIC LUPUS ERYTHEMATOSUS

REACTIONS (9)
  - Headache [Unknown]
  - Back disorder [Unknown]
  - Fatigue [Unknown]
  - Oropharyngeal pain [Unknown]
  - Intestinal ulcer [Unknown]
  - Sinusitis [Recovered/Resolved]
  - Intentional product use issue [Unknown]
  - Nausea [Unknown]
  - Malaise [Unknown]
